FAERS Safety Report 6101338-2 (Version None)
Quarter: 2009Q1

REPORT INFORMATION
  Report Type: 
  Country: None (occurrence: None)
  Receive Date: 20090227
  Receipt Date: 20080225
  Transmission Date: 20090719
  Serious: Yes (Disabling)
  Sender: FDA-Public Use
  Company Number: 2008S1003435

PATIENT
  Sex: Male

DRUGS (2)
  1. ACCUTANE [Suspect]
     Dates: start: 20041025, end: 20041122
  2. ISOTRETINOIN [Suspect]
     Dates: start: 20040524, end: 20041021

REACTIONS (1)
  - INFLAMMATORY BOWEL DISEASE [None]
